FAERS Safety Report 8506955-8 (Version None)
Quarter: 2012Q3

REPORT INFORMATION
  Report Type: 
  Country: None (occurrence: None)
  Receive Date: 20120712
  Receipt Date: 20120702
  Transmission Date: 20120928
  Serious: Yes (Other)
  Sender: FDA-Public Use
  Company Number: US-ELI_LILLY_AND_COMPANY-US201205007398

PATIENT
  Sex: Male
  Weight: 106.58 kg

DRUGS (3)
  1. AXIRON [Suspect]
     Dosage: 30 MG ALTERNATE 1 AND 2 PUMPS
  2. AXIRON [Suspect]
     Dosage: 30 MG 2 PUMPS QD
     Dates: end: 20120623
  3. AXIRON [Suspect]
     Indication: HYPOGONADISM
     Dosage: 30 MG EACH AXILLA QD

REACTIONS (2)
  - BLOOD TESTOSTERONE ABNORMAL [None]
  - DRUG INEFFECTIVE [None]
